FAERS Safety Report 4798529-X (Version None)
Quarter: 2005Q4

REPORT INFORMATION
  Report Type: 
  Country: None (occurrence: None)
  Receive Date: 20051014
  Receipt Date: 20050909
  Transmission Date: 20060501
  Serious: Yes (Other)
  Sender: FDA-Public Use
  Company Number: US-MERCK-0509USA01468

PATIENT
  Age: 57 Year
  Sex: Male
  Weight: 89 kg

DRUGS (15)
  1. VIOXX [Suspect]
     Indication: BACK PAIN
     Route: 048
     Dates: start: 20000211, end: 20040407
  2. VIOXX [Suspect]
     Route: 048
     Dates: start: 20000211, end: 20040407
  3. VIOXX [Suspect]
     Indication: ARTHRALGIA
     Route: 048
     Dates: start: 20000211, end: 20040407
  4. VIOXX [Suspect]
     Route: 048
     Dates: start: 20000211, end: 20040407
  5. VIAGRA [Concomitant]
     Route: 065
  6. VEETIDS [Concomitant]
     Route: 065
  7. DARVOCET-N 100 [Concomitant]
     Route: 065
  8. VICODIN [Concomitant]
     Route: 065
  9. ZITHROMAX [Concomitant]
     Route: 065
  10. PREVACID [Concomitant]
     Route: 065
  11. NITROQUICK [Concomitant]
     Route: 065
  12. PENICILLIN VK [Concomitant]
     Route: 065
  13. GARLIC-ACTIVE [Concomitant]
     Route: 065
  14. METOPROLOL [Concomitant]
     Route: 065
  15. METHYLPREDNISOLONE [Concomitant]
     Route: 065

REACTIONS (7)
  - ABDOMINAL DISCOMFORT [None]
  - ACUTE CORONARY SYNDROME [None]
  - ACUTE MYOCARDIAL INFARCTION [None]
  - CHEST PAIN [None]
  - GASTROOESOPHAGEAL REFLUX DISEASE [None]
  - HYPERTENSION [None]
  - LIGAMENT SPRAIN [None]
